FAERS Safety Report 16039711 (Version 4)
Quarter: 2019Q2

REPORT INFORMATION
  Report Type: Report from Study
  Country: None (occurrence: US)
  Receive Date: 20190306
  Receipt Date: 20190403
  Transmission Date: 20190711
  Serious: Yes (Hospitalization)
  Sender: FDA-Public Use
  Company Number: US-ABBVIE-19S-163-2688191-00

PATIENT
  Age: 59 Year
  Sex: Female

DRUGS (1)
  1. DUOPA [Suspect]
     Active Substance: CARBIDOPA\LEVODOPA
     Indication: PARKINSON^S DISEASE
     Route: 050
     Dates: start: 20190301

REACTIONS (8)
  - Stoma site erythema [Unknown]
  - Therapeutic response shortened [Unknown]
  - Constipation [Unknown]
  - Abdominal pain [Unknown]
  - Stoma site pain [Unknown]
  - Stoma site discharge [Unknown]
  - Stoma site infection [Unknown]
  - Stoma site reaction [Unknown]

NARRATIVE: CASE EVENT DATE: 20190301
